FAERS Safety Report 7611670-9 (Version None)
Quarter: 2011Q3

REPORT INFORMATION
  Report Type: 
  Country: None (occurrence: None)
  Receive Date: 20110706
  Receipt Date: 20100830
  Transmission Date: 20111222
  Serious: No
  Sender: FDA-Public Use
  Company Number: 2010-04616

PATIENT
  Sex: Female

DRUGS (3)
  1. IMOGAM RABIES-HT [Suspect]
     Indication: IMMUNISATION
     Dates: start: 20100821, end: 20100821
  2. IMOVAX RABIES I.D. [Suspect]
     Indication: IMMUNISATION
     Dates: start: 20100824, end: 20100824
  3. IMOVAX RABIES I.D. [Suspect]
     Indication: IMMUNISATION
     Dates: start: 20100821, end: 20100821

REACTIONS (1)
  - VACCINATION SITE PAIN [None]
